FAERS Safety Report 19920530 (Version 4)
Quarter: 2022Q1

REPORT INFORMATION
  Report Type: Report from Study
  Country: AU (occurrence: AU)
  Receive Date: 20211005
  Receipt Date: 20220214
  Transmission Date: 20220424
  Serious: Yes (Hospitalization)
  Sender: FDA-Public Use
  Company Number: AU-BAYER-2021-205362

PATIENT
  Age: 58 Year
  Sex: Male
  Weight: 56.8 kg

DRUGS (15)
  1. REGORAFENIB [Suspect]
     Active Substance: REGORAFENIB
     Indication: Gastrooesophageal cancer
     Dosage: 90 MG
     Route: 048
     Dates: start: 20210818
  2. REGORAFENIB [Suspect]
     Active Substance: REGORAFENIB
     Indication: Gastrooesophageal cancer
     Dosage: 60 MG
     Route: 048
  3. NIVOLUMAB [Suspect]
     Active Substance: NIVOLUMAB
     Indication: Gastrooesophageal cancer
     Dosage: 240 MG
     Route: 042
     Dates: start: 20210818, end: 20210818
  4. BISACODYL [Concomitant]
     Active Substance: BISACODYL
     Indication: Prophylaxis
     Dosage: 10 MG, QD
     Route: 048
     Dates: start: 20210809
  5. GABAPENTIN [Concomitant]
     Active Substance: GABAPENTIN
     Indication: Prophylaxis
     Dosage: 100 MG, TID
     Route: 048
     Dates: start: 20210809
  6. METOCLOPRAMIDE [Concomitant]
     Active Substance: METOCLOPRAMIDE
     Indication: Prophylaxis
     Dosage: 10 MG, QID
     Route: 048
     Dates: start: 20210809, end: 20210817
  7. NIZATIDINE [Concomitant]
     Active Substance: NIZATIDINE
     Indication: Prophylaxis
     Dosage: 300 MG, QD
     Route: 048
     Dates: start: 20210809
  8. PANTOPRAZOLE [Concomitant]
     Active Substance: PANTOPRAZOLE
     Indication: Prophylaxis
     Dosage: 80 MG, BID
     Route: 048
     Dates: start: 20210809
  9. VITAMIN B1 [Concomitant]
     Active Substance: THIAMINE HYDROCHLORIDE
     Indication: Prophylaxis
     Dosage: 300 MG, QD
     Route: 048
     Dates: start: 20210809
  10. PRUCALOPRIDE [Concomitant]
     Active Substance: PRUCALOPRIDE
     Indication: Prophylaxis
     Dosage: 2 MG, QD
     Route: 048
     Dates: start: 20210809
  11. HYDROMORPHONE [Concomitant]
     Active Substance: HYDROMORPHONE
     Indication: Prophylaxis
     Dosage: 4 MG, QD
     Route: 048
     Dates: start: 20210809
  12. GASTROGRAFIN [Concomitant]
     Active Substance: DIATRIZOATE MEGLUMINE\DIATRIZOATE SODIUM
     Indication: Prophylaxis
     Dosage: 100 ML, QD
     Route: 048
     Dates: start: 20210809
  13. METOPROLOL [Concomitant]
     Active Substance: METOPROLOL
     Indication: Chronic disease
     Dosage: 25 MG, QD
     Route: 048
     Dates: start: 20210827, end: 20210925
  14. METOPROLOL [Concomitant]
     Active Substance: METOPROLOL
     Indication: Chronic disease
     Dosage: 50 MG, BID
     Route: 048
     Dates: start: 20210926
  15. SODIUM CHLORIDE [Concomitant]
     Active Substance: SODIUM CHLORIDE
     Indication: Prophylaxis
     Dosage: ML ONCE
     Route: 042
     Dates: start: 20210827, end: 20210827

REACTIONS (3)
  - Supraventricular tachycardia [Recovered/Resolved]
  - Dehydration [Recovered/Resolved]
  - Myocarditis [Recovered/Resolved]

NARRATIVE: CASE EVENT DATE: 20210827
